FAERS Safety Report 12839742 (Version 1)
Quarter: 2016Q4

REPORT INFORMATION
  Report Type: Spontaneous
  Country: US (occurrence: US)
  Receive Date: 20161012
  Receipt Date: 20161012
  Transmission Date: 20170207
  Serious: No
  Sender: FDA-Public Use
  Company Number: None

PATIENT
  Sex: Female
  Weight: 104.33 kg

DRUGS (1)
  1. HUMIRA [Suspect]
     Active Substance: ADALIMUMAB
     Indication: FELTY^S SYNDROME
     Route: 058
     Dates: start: 20160808

REACTIONS (5)
  - Injection site pain [None]
  - Paraesthesia oral [None]
  - Arthralgia [None]
  - Fatigue [None]
  - Headache [None]
